FAERS Safety Report 16120401 (Version 1)
Quarter: 2019Q1

REPORT INFORMATION
  Report Type: Spontaneous
  Country: FR (occurrence: FR)
  Receive Date: 20190326
  Receipt Date: 20190326
  Transmission Date: 20190418
  Serious: Yes (Hospitalization)
  Sender: FDA-Public Use
  Company Number: FR-BAXTER-2019BAX005713

PATIENT
  Age: 6 Year
  Sex: Female
  Weight: 21.25 kg

DRUGS (3)
  1. ENDOXAN 1000 MG, POUDRE POUR SOLUTIONINJECTABLE [Suspect]
     Active Substance: CYCLOPHOSPHAMIDE
     Indication: EWING-LIKE SARCOMA
     Route: 041
     Dates: start: 20180206, end: 20180206
  2. VINCRISTINE HOSPIRA [Suspect]
     Active Substance: VINCRISTINE
     Indication: EWING-LIKE SARCOMA
     Dosage: 2 MG/2 ML, SOLUTION INJECTABLE
     Route: 041
     Dates: start: 20180206, end: 20180206
  3. DOXORUBICIN ACCORD [Suspect]
     Active Substance: DOXORUBICIN HYDROCHLORIDE
     Indication: EWING-LIKE SARCOMA
     Route: 041
     Dates: start: 20180206, end: 20180207

REACTIONS (2)
  - Lung disorder [Recovered/Resolved]
  - Febrile bone marrow aplasia [Recovered/Resolved]

NARRATIVE: CASE EVENT DATE: 201802
